FAERS Safety Report 24865108 (Version 1)
Quarter: 2025Q1

REPORT INFORMATION
  Report Type: Spontaneous
  Country: US (occurrence: US)
  Receive Date: 20250121
  Receipt Date: 20250121
  Transmission Date: 20250408
  Serious: No
  Sender: Kenvue
  Company Number: US-KENVUE-20241205590

PATIENT
  Age: 5 Decade
  Sex: Female

DRUGS (2)
  1. MENS ROGAINE EXTRA STRENGTH [Suspect]
     Active Substance: MINOXIDIL
     Indication: Alopecia
     Route: 061
  2. low dose thyroid medication [Concomitant]
     Indication: Thyroid disorder
     Route: 065

REACTIONS (4)
  - Seborrhoea [Unknown]
  - Off label use [Unknown]
  - Poor quality product administered [Unknown]
  - Product formulation issue [Unknown]
